FAERS Safety Report 13902850 (Version 1)
Quarter: 2017Q3

REPORT INFORMATION
  Report Type: Spontaneous
  Country: ID (occurrence: ID)
  Receive Date: 20170824
  Receipt Date: 20170824
  Transmission Date: 20171127
  Serious: Yes (Hospitalization)
  Sender: FDA-Public Use
  Company Number: ID-APOPHARMA-2017AP010563

PATIENT
  Age: 11 Year
  Sex: Female

DRUGS (1)
  1. FERRIPROX [Suspect]
     Active Substance: DEFERIPRONE
     Indication: THALASSAEMIA BETA
     Dosage: 100 MG/KG, QD
     Route: 048
     Dates: start: 201207

REACTIONS (6)
  - Oral surgery [Recovered/Resolved]
  - Oral infection [Recovered/Resolved]
  - Gingival bleeding [Recovering/Resolving]
  - Arthralgia [Recovered/Resolved]
  - Gingival hypertrophy [Recovering/Resolving]
  - Vitamin C deficiency [Unknown]

NARRATIVE: CASE EVENT DATE: 201612
